FAERS Safety Report 19969381 (Version 2)
Quarter: 2021Q4

REPORT INFORMATION
  Report Type: Spontaneous
  Country: JP (occurrence: JP)
  Receive Date: 20211019
  Receipt Date: 20211126
  Transmission Date: 20220303
  Serious: Yes (Hospitalization, Disabling)
  Sender: FDA-Public Use
  Company Number: JP-PFIZER INC-202101334101

PATIENT
  Age: 75 Year
  Sex: Female
  Weight: 58 kg

DRUGS (5)
  1. XELJANZ [Suspect]
     Active Substance: TOFACITINIB CITRATE
     Indication: Rheumatoid arthritis
     Dosage: 10 MG, 2X/DAY
     Route: 048
     Dates: start: 20190312
  2. VONOPRAZAN FUMARATE [Concomitant]
     Active Substance: VONOPRAZAN FUMARATE
     Indication: Gastrooesophageal reflux disease
     Dosage: 20 MG, 1X/DAY
     Route: 048
     Dates: start: 20180330
  3. ELDECALCITOL [Concomitant]
     Active Substance: ELDECALCITOL
     Indication: Osteoporosis
     Dosage: 0.75 UG, 1X/DAY
     Route: 048
     Dates: start: 20190514
  4. BONVIVA [Concomitant]
     Active Substance: IBANDRONATE SODIUM
     Indication: Osteoporosis
     Dosage: 100 MG, 1X/DAY
     Route: 048
     Dates: start: 20190514
  5. LOXOPROFEN SODIUM [Concomitant]
     Active Substance: LOXOPROFEN SODIUM
     Indication: Rheumatoid arthritis
     Dosage: 100 MG, 1X/DAY
     Route: 062
     Dates: start: 20191217

REACTIONS (2)
  - Cerebral infarction [Unknown]
  - Hemiparesis [Unknown]

NARRATIVE: CASE EVENT DATE: 20210921
